FAERS Safety Report 21854928 (Version 1)
Quarter: 2023Q1

REPORT INFORMATION
  Report Type: Spontaneous
  Country: US (occurrence: None)
  Receive Date: 20230112
  Receipt Date: 20230112
  Transmission Date: 20230418
  Serious: Yes (Hospitalization, Other)
  Sender: FDA-Public Use
  Company Number: None

PATIENT
  Age: 33 Year
  Sex: Male

DRUGS (4)
  1. NALTREXONE [Suspect]
     Active Substance: NALTREXONE
  2. ESCITALOPRAM [Suspect]
     Active Substance: ESCITALOPRAM OXALATE
  3. RISPERIDONE [Suspect]
     Active Substance: RISPERIDONE
  4. CHANTIX [Concomitant]
     Active Substance: VARENICLINE TARTRATE

REACTIONS (4)
  - Poisoning [None]
  - Soliloquy [None]
  - Drug ineffective [None]
  - Impaired work ability [None]

NARRATIVE: CASE EVENT DATE: 20190101
